FAERS Safety Report 9391991 (Version 1)
Quarter: 2013Q3

REPORT INFORMATION
  Report Type: Report from Study
  Country: CA (occurrence: CA)
  Receive Date: 20130709
  Receipt Date: 20130709
  Transmission Date: 20140515
  Serious: Yes (Hospitalization)
  Sender: FDA-Public Use
  Company Number: CA-ABBOTT-13P-028-1116205-00

PATIENT
  Age: 22 Year
  Sex: Female
  Weight: 72.64 kg

DRUGS (5)
  1. HUMIRA [Suspect]
     Indication: CROHN^S DISEASE
     Route: 058
     Dates: start: 20120611, end: 201306
  2. HUMIRA [Suspect]
     Route: 058
     Dates: start: 201306
  3. ALESSA [Concomitant]
     Indication: CONTRACEPTION
     Route: 048
     Dates: start: 2012
  4. PANTOLOC [Concomitant]
     Indication: GASTROOESOPHAGEAL REFLUX DISEASE
     Route: 048
  5. IMURAN [Concomitant]
     Indication: CROHN^S DISEASE
     Route: 048

REACTIONS (5)
  - Colitis [Not Recovered/Not Resolved]
  - Fistula [Not Recovered/Not Resolved]
  - Migraine [Recovered/Resolved]
  - Vomiting [Recovered/Resolved]
  - Enteritis infectious [Not Recovered/Not Resolved]
